FAERS Safety Report 8283901-6 (Version None)
Quarter: 2012Q2

REPORT INFORMATION
  Report Type: 
  Country: None (occurrence: None)
  Receive Date: 20120413
  Receipt Date: 20120409
  Transmission Date: 20120825
  Serious: Yes (Death)
  Sender: FDA-Public Use
  Company Number: RU-ELI_LILLY_AND_COMPANY-RU201204002703

PATIENT
  Age: 61 Year
  Sex: Male

DRUGS (3)
  1. GLYBURIDE [Concomitant]
     Dosage: UNK, UNKNOWN
  2. METFORMIN HCL [Concomitant]
     Dosage: UNK, UNKNOWN
  3. BYETTA [Suspect]
     Indication: TYPE 2 DIABETES MELLITUS
     Dosage: 10 UG, UNK
     Route: 058
     Dates: end: 20120306

REACTIONS (1)
  - DEATH [None]
